FAERS Safety Report 24313942 (Version 1)
Quarter: 2024Q3

REPORT INFORMATION
  Report Type: Spontaneous
  Country: US (occurrence: US)
  Receive Date: 20240912
  Receipt Date: 20240912
  Transmission Date: 20241016
  Serious: No
  Sender: BRISTOL MYERS SQUIBB
  Company Number: US-BRISTOL-MYERS SQUIBB COMPANY-2024-132781

PATIENT
  Age: 80 Year
  Sex: Female
  Weight: 61.69 kg

DRUGS (10)
  1. SPRYCEL [Suspect]
     Active Substance: DASATINIB
     Indication: Chronic myeloid leukaemia
     Route: 048
     Dates: start: 20240515
  2. SPRYCEL [Suspect]
     Active Substance: DASATINIB
     Route: 048
  3. SPRYCEL [Suspect]
     Active Substance: DASATINIB
     Route: 048
  4. SPRYCEL [Suspect]
     Active Substance: DASATINIB
     Dosage: ONCE A DAY FOR SEVEN DAYS
     Route: 048
  5. SPRYCEL [Suspect]
     Active Substance: DASATINIB
     Route: 048
  6. SPRYCEL [Suspect]
     Active Substance: DASATINIB
     Route: 048
  7. FARXIGA [Concomitant]
     Active Substance: DAPAGLIFLOZIN PROPANEDIOL
     Indication: Blood glucose increased
  8. FARXIGA [Concomitant]
     Active Substance: DAPAGLIFLOZIN PROPANEDIOL
     Indication: Diabetes mellitus
  9. XARELTO [Concomitant]
     Active Substance: RIVAROXABAN
     Indication: Blood glucose increased
  10. XARELTO [Concomitant]
     Active Substance: RIVAROXABAN
     Indication: Diabetes mellitus

REACTIONS (3)
  - White blood cell count decreased [Unknown]
  - Treatment noncompliance [Unknown]
  - Weight decreased [Unknown]
